FAERS Safety Report 18261080 (Version 1)
Quarter: 2020Q3

REPORT INFORMATION
  Report Type: Spontaneous
  Country: DE (occurrence: DE)
  Receive Date: 20200914
  Receipt Date: 20200914
  Transmission Date: 20201103
  Serious: Yes (Death, Hospitalization, Other)
  Sender: FDA-Public Use
  Company Number: DE-TEVA-2020-DE-1826158

PATIENT
  Age: 47 Year
  Sex: Male

DRUGS (49)
  1. METHYLPREDNISOLONE. [Concomitant]
     Active Substance: METHYLPREDNISOLONE
     Dosage: 20 MG
     Route: 065
     Dates: start: 20110615, end: 20110712
  2. METHYLPREDNISOLONE. [Concomitant]
     Active Substance: METHYLPREDNISOLONE
     Dosage: 1 MG
     Dates: start: 20110810, end: 20110824
  3. METHYLPREDNISOLONE. [Concomitant]
     Active Substance: METHYLPREDNISOLONE
     Dosage: 40 MG
     Route: 065
     Dates: start: 20110508, end: 20110515
  4. KEPPRA [Concomitant]
     Active Substance: LEVETIRACETAM
     Dosage: 3000 MG
     Route: 065
     Dates: start: 20110126, end: 20110413
  5. GLYCEROSTERIL [Concomitant]
     Dosage: 625 ML
     Dates: start: 20120124, end: 20120124
  6. TEMOZOLOMIDE. [Suspect]
     Active Substance: TEMOZOLOMIDE
     Indication: GLIOBLASTOMA MULTIFORME
     Dosage: 420 MG, D1 ? D5 EVERY 28 DAYS
     Dates: start: 20110112
  7. METHYLPREDNISOLONE. [Concomitant]
     Active Substance: METHYLPREDNISOLONE
     Dosage: 500MG
     Dates: start: 20120122, end: 20120122
  8. METHYLPREDNISOLONE. [Concomitant]
     Active Substance: METHYLPREDNISOLONE
     Dosage: 20 MG
     Dates: start: 20110615, end: 20110620
  9. KEPPRA [Concomitant]
     Active Substance: LEVETIRACETAM
     Dosage: 4000 MG
     Route: 065
     Dates: start: 20110413
  10. DEXAMETHASONE. [Concomitant]
     Active Substance: DEXAMETHASONE
     Dosage: 6 MILLIGRAM DAILY;
     Dates: start: 20110518, end: 20110518
  11. DEXAMETHASONE. [Concomitant]
     Active Substance: DEXAMETHASONE
     Dosage: 1 MG
     Route: 065
     Dates: start: 20110228, end: 20110305
  12. ONDANSETRON [Concomitant]
     Active Substance: ONDANSETRON
     Dosage: 4 MG
     Route: 065
     Dates: start: 20110112, end: 20110222
  13. PROPANOLOL [Concomitant]
     Active Substance: PROPRANOLOL HYDROCHLORIDE
     Dosage: 20 MG
     Route: 065
     Dates: start: 20110918
  14. PANTOZOL [Concomitant]
     Active Substance: PANTOPRAZOLE SODIUM
     Dosage: 40 MG
     Route: 065
     Dates: start: 20110110
  15. IRINOTECAN HYDROCHLORIDE. [Suspect]
     Active Substance: IRINOTECAN HYDROCHLORIDE
     Indication: GLIOBLASTOMA MULTIFORME
     Dosage: 253.20 MG BI WEEKLY
     Route: 042
  16. IRINOTECAN HYDROCHLORIDE. [Suspect]
     Active Substance: IRINOTECAN HYDROCHLORIDE
     Indication: GLIOBLASTOMA MULTIFORME
     Dosage: 253.20 MG BI WEEKLY
     Route: 042
  17. ULTRAVIST [Suspect]
     Active Substance: IOPROMIDE
     Indication: COMPUTERISED TOMOGRAM
     Dosage: UNK
  18. ULTRAVIST [Suspect]
     Active Substance: IOPROMIDE
     Indication: COMPUTERISED TOMOGRAM
     Dosage: UNK
     Dates: start: 20110530
  19. METHYLPREDNISOLONE. [Concomitant]
     Active Substance: METHYLPREDNISOLONE
     Dosage: 1000MG
     Dates: start: 20120123, end: 20120124
  20. METHYLPREDNISOLONE. [Concomitant]
     Active Substance: METHYLPREDNISOLONE
     Dosage: 120 MG
     Dates: start: 20110531, end: 20110605
  21. METHYLPREDNISOLONE. [Concomitant]
     Active Substance: METHYLPREDNISOLONE
     Dosage: 40 MG
     Dates: start: 20110606, end: 20110614
  22. METHYLPREDNISOLONE. [Concomitant]
     Active Substance: METHYLPREDNISOLONE
     Dosage: 1 MG
     Route: 065
     Dates: start: 20110810, end: 20110824
  23. IBUPROFEN. [Concomitant]
     Active Substance: IBUPROFEN
     Dosage: 400 MG
     Route: 065
     Dates: start: 20110110, end: 20110126
  24. METHYLPREDNISOLONE. [Concomitant]
     Active Substance: METHYLPREDNISOLONE
     Dosage: 10 MG
     Route: 065
     Dates: start: 20110712, end: 20110728
  25. METHYLPREDNISOLONE. [Concomitant]
     Active Substance: METHYLPREDNISOLONE
     Dosage: 500 MG
     Dates: start: 20120119, end: 20120119
  26. METHYLPREDNISOLONE. [Concomitant]
     Active Substance: METHYLPREDNISOLONE
     Dosage: 40
     Dates: start: 20110530, end: 20110530
  27. METHYLPREDNISOLONE. [Concomitant]
     Active Substance: METHYLPREDNISOLONE
     Dosage: 500 MG
     Dates: start: 20110502, end: 20110502
  28. KEPPRA [Concomitant]
     Active Substance: LEVETIRACETAM
     Dosage: 2000 MG
     Route: 065
     Dates: start: 20110110, end: 20110118
  29. THIAMAZOLE [Concomitant]
     Active Substance: METHIMAZOLE
     Dosage: 80 MG
     Route: 065
     Dates: start: 20110916
  30. BEVACIZUMAB. [Suspect]
     Active Substance: BEVACIZUMAB
     Indication: GLIOBLASTOMA MULTIFORME
     Dosage: 820 MG, BI WEEKLY
     Route: 042
  31. METHYLPREDNISOLONE. [Concomitant]
     Active Substance: METHYLPREDNISOLONE
     Dosage: 120 MG
     Route: 065
     Dates: start: 20120127, end: 20120201
  32. METHYLPREDNISOLONE. [Concomitant]
     Active Substance: METHYLPREDNISOLONE
     Dosage: 10 MG
     Dates: start: 20110712, end: 20110714
  33. METHYLPREDNISOLONE. [Concomitant]
     Active Substance: METHYLPREDNISOLONE
     Dosage: 500MG
     Dates: start: 20120125, end: 20120125
  34. COTRIM [Concomitant]
     Active Substance: SULFAMETHOXAZOLE\TRIMETHOPRIM
     Dosage: 960 MG
     Route: 065
     Dates: start: 20110112, end: 20110314
  35. RAMIPRIL. [Concomitant]
     Active Substance: RAMIPRIL
     Dosage: 5 MG
     Route: 065
     Dates: start: 20110916
  36. METHYLPREDNISOLONE. [Concomitant]
     Active Substance: METHYLPREDNISOLONE
     Dosage: 20 MG
     Dates: start: 20111214, end: 20120118
  37. METHYLPREDNISOLONE. [Concomitant]
     Active Substance: METHYLPREDNISOLONE
     Dosage: 16 MG
     Dates: start: 20110621, end: 20110711
  38. METHYLPREDNISOLONE. [Concomitant]
     Active Substance: METHYLPREDNISOLONE
     Dosage: 2 MG
     Route: 065
     Dates: start: 20110728, end: 20110810
  39. DEXAMETHASONE. [Concomitant]
     Active Substance: DEXAMETHASONE
     Dosage: 6 MG
     Route: 065
     Dates: start: 20110525, end: 20110529
  40. KANAMYCIN [Concomitant]
     Active Substance: KANAMYCIN A SULFATE
     Dosage: 4 DOSAGE FORMS DAILY; 1?1?1?1
     Route: 065
     Dates: start: 20110314, end: 20110418
  41. METHYLPREDNISOLONE. [Concomitant]
     Active Substance: METHYLPREDNISOLONE
     Dosage: 1000 MG
     Dates: start: 20120120, end: 20120121
  42. METHYLPREDNISOLONE. [Concomitant]
     Active Substance: METHYLPREDNISOLONE
     Dosage: 1000 MG
     Route: 065
     Dates: start: 20110502, end: 20110504
  43. METHYLPREDNISOLONE. [Concomitant]
     Active Substance: METHYLPREDNISOLONE
     Dosage: 4 MG
     Dates: start: 20110715, end: 20110727
  44. DEXAMETHASONE. [Concomitant]
     Active Substance: DEXAMETHASONE
     Dosage: 4 MG
     Route: 065
     Dates: start: 20110305, end: 20110502
  45. GLYCEROSTERIL [Concomitant]
     Dosage: 500 ML
     Dates: start: 20120125, end: 20120126
  46. GLYCEROSTERIL [Concomitant]
     Dosage: 375 ML
     Dates: start: 20120123, end: 20120123
  47. METHYLPREDNISOLONE. [Concomitant]
     Active Substance: METHYLPREDNISOLONE
     Dosage: 2 MG
     Dates: start: 20110728, end: 20110809
  48. METHYLPREDNISOLONE. [Concomitant]
     Active Substance: METHYLPREDNISOLONE
     Dosage: 500 MG
     Route: 065
     Dates: start: 20110505, end: 20110505
  49. KEPPRA [Concomitant]
     Active Substance: LEVETIRACETAM
     Dosage: 800 MILLIGRAM DAILY;
     Route: 065
     Dates: start: 20110118, end: 20110126

REACTIONS (2)
  - Hyperthyroidism [Recovered/Resolved]
  - Nausea [Recovered/Resolved]

NARRATIVE: CASE EVENT DATE: 20110907
